FAERS Safety Report 9238985 (Version 2)
Quarter: 2013Q2

REPORT INFORMATION
  Report Type: Report from Study
  Country: JP (occurrence: JP)
  Receive Date: 20130418
  Receipt Date: 20130513
  Transmission Date: 20140414
  Serious: Yes (Hospitalization)
  Sender: FDA-Public Use
  Company Number: JP-AMGEN-JPNCT2013026837

PATIENT
  Age: 68 Year
  Sex: Male
  Weight: 75 kg

DRUGS (29)
  1. DARBEPOETIN ALFA [Suspect]
     Indication: NEPHROGENIC ANAEMIA
     Dosage: 30 MUG, Q4WK
     Route: 058
     Dates: start: 20101028, end: 20101222
  2. DARBEPOETIN ALFA [Suspect]
     Dosage: 30 MUG, QD
     Route: 058
     Dates: start: 20110127, end: 20110127
  3. DARBEPOETIN ALFA [Suspect]
     Dosage: 30 MUG, QD
     Route: 058
     Dates: start: 20110428, end: 20110428
  4. DARBEPOETIN ALFA [Suspect]
     Dosage: 30 MUG, QD
     Route: 058
     Dates: start: 20110602, end: 20110602
  5. DARBEPOETIN ALFA [Suspect]
     Dosage: 30 MUG, QD
     Route: 058
     Dates: start: 20110707, end: 20110707
  6. DARBEPOETIN ALFA [Suspect]
     Dosage: 30 MUG, QD
     Route: 058
     Dates: start: 20110818, end: 20110818
  7. DARBEPOETIN ALFA [Suspect]
     Dosage: 30 MUG, QD
     Route: 058
     Dates: start: 20110929, end: 20110929
  8. DARBEPOETIN ALFA [Suspect]
     Dosage: 30 MUG, QD
     Route: 058
     Dates: start: 20111110, end: 20111110
  9. DARBEPOETIN ALFA [Suspect]
     Dosage: 30 MUG, QD
     Route: 058
     Dates: start: 20111215, end: 20111215
  10. DARBEPOETIN ALFA [Suspect]
     Dosage: 60 MUG, QD
     Route: 058
     Dates: start: 20120131, end: 20120131
  11. DARBEPOETIN ALFA [Suspect]
     Dosage: 120 MUG, QD
     Route: 058
     Dates: start: 20120412, end: 20120412
  12. DARBEPOETIN ALFA [Suspect]
     Dosage: 120 MUG, QD
     Route: 058
     Dates: start: 20120423, end: 20120423
  13. DARBEPOETIN ALFA [Suspect]
     Dosage: 120 MUG, Q3WK
     Route: 058
     Dates: start: 20120731
  14. DIOVAN [Concomitant]
     Dosage: UNK
     Route: 048
  15. NIFEDIPINE [Concomitant]
     Dosage: UNK
     Route: 048
  16. FRANDOL [Concomitant]
     Dosage: UNK
     Route: 048
  17. BAYASPIRIN [Concomitant]
     Dosage: UNK
     Route: 048
  18. FLUITRAN [Concomitant]
     Dosage: UNK
     Route: 048
  19. LIVALO [Concomitant]
     Dosage: UNK
     Route: 048
  20. MIKELAN LA [Concomitant]
     Dosage: UNK
     Route: 048
  21. AMARYL [Concomitant]
     Dosage: UNK
     Route: 048
  22. DIART [Concomitant]
     Dosage: UNK
     Route: 048
  23. LASIX [Concomitant]
     Dosage: UNK
     Route: 048
  24. TAKEPRON [Concomitant]
     Dosage: UNK
     Route: 048
  25. LYRICA [Concomitant]
     Dosage: UNK
     Route: 048
  26. HUMALOG [Concomitant]
     Dosage: UNK
     Route: 058
  27. LEVEMIR [Concomitant]
     Dosage: UNK
     Route: 058
  28. PREDNISOLONE [Concomitant]
     Dosage: UNK
     Route: 048
  29. BAKTAR [Concomitant]
     Dosage: UNK
     Route: 048

REACTIONS (1)
  - Interstitial lung disease [Recovered/Resolved]
